FAERS Safety Report 5822251-1 (Version None)
Quarter: 2008Q3

REPORT INFORMATION
  Report Type: 
  Country: None (occurrence: None)
  Receive Date: 20080722
  Receipt Date: 20080703
  Transmission Date: 20090109
  Serious: Yes (Death)
  Sender: FDA-Public Use
  Company Number: 8034521

PATIENT
  Age: 7 Year
  Sex: Male
  Weight: 23 kg

DRUGS (2)
  1. PREDNISOLONE [Suspect]
     Indication: DUCHENNE MUSCULAR DYSTROPHY
     Dosage: PO
     Route: 048
     Dates: start: 20051001
  2. OMEPRAZOLE [Concomitant]

REACTIONS (1)
  - PEPTIC ULCER PERFORATION [None]
